FAERS Safety Report 9376972 (Version 1)
Quarter: 2013Q3

REPORT INFORMATION
  Report Type: Report from Study
  Country: DE (occurrence: DE)
  Receive Date: 20130701
  Receipt Date: 20130701
  Transmission Date: 20140515
  Serious: Yes (Death, Hospitalization, Other)
  Sender: FDA-Public Use
  Company Number: PHHO2008DE03418

PATIENT
  Age: 65 Year
  Sex: Female
  Weight: 80 kg

DRUGS (5)
  1. ZOLEDRONATE [Suspect]
     Indication: BREAST CANCER
     Dosage: 4 MG, Q3MO
     Route: 042
     Dates: start: 20070102, end: 20070327
  2. HERCEPTIN [Concomitant]
     Dosage: 656 MG, UNK
     Route: 042
     Dates: start: 20070312, end: 20070312
  3. DEXAMETHASONE [Concomitant]
     Indication: PROPHYLAXIS
     Dosage: UNK
     Route: 042
     Dates: start: 20070329
  4. CALCIUM [Concomitant]
  5. VITAMIN D [Concomitant]

REACTIONS (4)
  - Metastases to central nervous system [Fatal]
  - Brain oedema [Fatal]
  - Aphasia [Fatal]
  - Malignant neoplasm progression [Fatal]
